FAERS Safety Report 26032537 (Version 1)
Quarter: 2025Q4

REPORT INFORMATION
  Report Type: Spontaneous
  Country: CN (occurrence: CN)
  Receive Date: 20251112
  Receipt Date: 20251112
  Transmission Date: 20260118
  Serious: Yes (Hospitalization, Other)
  Sender: BAXTER
  Company Number: None

PATIENT
  Age: 64 Year
  Sex: Male
  Weight: 69 kg

DRUGS (7)
  1. CYCLOPHOSPHAMIDE [Suspect]
     Active Substance: CYCLOPHOSPHAMIDE
     Indication: Respiratory failure
     Dosage: 60 MG, QD (0.2 G/VIAL) D1
     Route: 041
     Dates: start: 20250531, end: 20250531
  2. SODIUM CHLORIDE [Suspect]
     Active Substance: SODIUM CHLORIDE
     Dosage: 500 ML, QD (500ML: 4.5G/BAG) 0.9% SODIUM CHLORIDE WITH CYCLOPHOSPHAMIDE D1
     Route: 041
     Dates: start: 20250531, end: 20250531
  3. SODIUM CHLORIDE [Suspect]
     Active Substance: SODIUM CHLORIDE
     Dosage: 20 ML, QD (10ML: 0.09G/VIAL) 0.9% SODIUM CHLORIDE WITH VINCRISTINE SULFATE D1
     Route: 041
     Dates: start: 20250531, end: 20250531
  4. DEXTROSE [Suspect]
     Active Substance: DEXTROSE MONOHYDRATE
     Dosage: 250 ML, QD (250ML:12.5G/BAG) 5% GLUCOSE WITH DOXORUBICIN HYDROCHLORIDE D1
     Route: 041
     Dates: start: 20250531, end: 20250531
  5. DOXORUBICIN HYDROCHLORIDE [Suspect]
     Active Substance: DOXORUBICIN HYDROCHLORIDE
     Indication: Respiratory failure
     Dosage: 40 MG, QD (10MG/VIAL) D1
     Route: 041
     Dates: start: 20250531, end: 20250531
  6. VINCRISTINE SULFATE [Suspect]
     Active Substance: VINCRISTINE SULFATE
     Indication: Respiratory failure
     Dosage: 1 MG, QD (1MG/VIAL) D1
     Route: 041
     Dates: start: 20250531, end: 20250531
  7. PREDNISONE [Concomitant]
     Active Substance: PREDNISONE
     Indication: Respiratory failure
     Dosage: 50 MG D1-5
     Route: 065
     Dates: start: 20250531, end: 20250604

REACTIONS (2)
  - Myelosuppression [Recovering/Resolving]
  - Platelet count decreased [Recovering/Resolving]

NARRATIVE: CASE EVENT DATE: 20250531
